FAERS Safety Report 5844484-0 (Version None)
Quarter: 2008Q3

REPORT INFORMATION
  Report Type: 
  Country: None (occurrence: None)
  Receive Date: 20080812
  Receipt Date: 20080731
  Transmission Date: 20090109
  Serious: Yes (Hospitalization)
  Sender: FDA-Public Use
  Company Number: 232619J08USA

PATIENT
  Age: 47 Year
  Sex: Male
  Weight: 102.0593 kg

DRUGS (3)
  1. REBIF [Suspect]
     Indication: MULTIPLE SCLEROSIS
     Dosage: 44 MCG, 3 IN 1 WEEKS, SUBCUTANEOUS
     Route: 058
     Dates: start: 20040325
  2. FLOMAX (MORNIFLUMATE) [Concomitant]
  3. ARICEPT [Concomitant]

REACTIONS (4)
  - CONVULSION [None]
  - IMMOBILE [None]
  - POSTICTAL PARALYSIS [None]
  - URINARY TRACT INFECTION [None]
